FAERS Safety Report 4546656-4 (Version None)
Quarter: 2005Q1

REPORT INFORMATION
  Report Type: 
  Country: None (occurrence: None)
  Receive Date: 20050105
  Receipt Date: 20041221
  Transmission Date: 20050727
  Serious: Yes (Death, Hospitalization)
  Sender: FDA-Public Use
  Company Number: 2004AL000653

PATIENT
  Age: 42 Year
  Sex: Female

DRUGS (10)
  1. ACETAMINOPHEN [Suspect]
     Dosage: PO
     Route: 048
  2. ACETAMINOPHEN [Suspect]
     Dosage: PO
     Route: 048
  3. ACETAMINOPHEN AND HYDROCODONE BITARTRATE [Suspect]
     Dosage: PO
     Route: 048
  4. CARISOPRODOL [Suspect]
     Dosage: PO
     Route: 048
  5. ACETAMINOPHEN, ASPIRIN AND CAFFEINE [Suspect]
     Dosage: PO
     Route: 048
  6. ACETAMINOPHEN/DIPHENHYDRAMINE [Suspect]
     Dosage: PO
     Route: 048
  7. QUINAPRIL [Suspect]
     Dosage: PO
     Route: 048
  8. HYOSCYAMINE [Suspect]
     Dosage: PO
     Route: 048
  9. CIMETIDINE [Suspect]
     Dosage: PO
     Route: 048
  10. FLUOXETINE [Suspect]
     Dosage: PO
     Route: 048

REACTIONS (16)
  - ALANINE AMINOTRANSFERASE INCREASED [None]
  - ASPARTATE AMINOTRANSFERASE INCREASED [None]
  - BLOOD AMYLASE INCREASED [None]
  - BLOOD BICARBONATE DECREASED [None]
  - BLOOD GLUCOSE DECREASED [None]
  - BLOOD PH DECREASED [None]
  - COMPLETED SUICIDE [None]
  - FALL [None]
  - GENERAL PHYSICAL HEALTH DETERIORATION [None]
  - HYPOTENSION [None]
  - INTENTIONAL MISUSE [None]
  - INTERNATIONAL NORMALISED RATIO INCREASED [None]
  - LIPASE INCREASED [None]
  - MENTAL STATUS CHANGES [None]
  - SOMNOLENCE [None]
  - TACHYPNOEA [None]
